FAERS Safety Report 14812796 (Version 1)
Quarter: 2018Q2

REPORT INFORMATION
  Report Type: Spontaneous
  Country: FR (occurrence: FR)
  Receive Date: 20180426
  Receipt Date: 20180426
  Transmission Date: 20180711
  Serious: Yes (Other)
  Sender: FDA-Public Use
  Company Number: FR-MERCK KGAA-2046523

PATIENT
  Age: 71 Year
  Sex: Male

DRUGS (1)
  1. NOVOTHYROX [Suspect]
     Active Substance: LEVOTHYROXINE SODIUM
     Indication: THYROID DISORDER

REACTIONS (11)
  - Fatigue [None]
  - Nausea [None]
  - Diarrhoea [None]
  - Abdominal pain [None]
  - Muscle spasms [None]
  - Weight increased [None]
  - Aggression [None]
  - Pain [None]
  - Dizziness [None]
  - Nightmare [None]
  - Arthralgia [None]

NARRATIVE: CASE EVENT DATE: 2017
